FAERS Safety Report 8165193 (Version 2)
Quarter: 2014Q1

REPORT INFORMATION
  Report Type: Spontaneous
  Country: US (occurrence: US)
  Receive Date: 20111003
  Receipt Date: 20140206
  Transmission Date: 20141002
  Serious: No
  Sender: FDA-Public Use
  Company Number: US-JNJFOC-20110909426

PATIENT
  Age: 63 Year
  Sex: Male

DRUGS (1)
  1. DURAGESIC [Suspect]
     Indication: ANALGESIC THERAPY
     Route: 062

REACTIONS (5)
  - Wrong technique in drug usage process [Unknown]
  - Therapy change [Unknown]
  - Wrong technique in drug usage process [Unknown]
  - Product adhesion issue [Unknown]
  - Product quality issue [Unknown]
